FAERS Safety Report 6342057-7 (Version None)
Quarter: 2009Q3

REPORT INFORMATION
  Report Type: 
  Country: None (occurrence: None)
  Receive Date: 20090903
  Receipt Date: 20090825
  Transmission Date: 20100115
  Serious: Yes (Hospitalization)
  Sender: FDA-Public Use
  Company Number: TCI2009A03411

PATIENT
  Age: 70 Year
  Sex: Male

DRUGS (1)
  1. LANSAP 800 (LANSOPRAZOLE, CLARITHROMYCIN, AMOXCILLIN) [Suspect]
     Indication: HELICOBACTER INFECTION
     Dosage: 0.5 CARD (0.5 CARD, 1 IN 1 D) ORAL
     Route: 048
     Dates: start: 20090722, end: 20090722

REACTIONS (4)
  - EATING DISORDER [None]
  - PYREXIA [None]
  - RESTLESSNESS [None]
  - RHABDOMYOLYSIS [None]
